FAERS Safety Report 9856631 (Version 3)
Quarter: 2014Q1

REPORT INFORMATION
  Report Type: Report from Study
  Country: BR (occurrence: BR)
  Receive Date: 20140130
  Receipt Date: 20140227
  Transmission Date: 20141002
  Serious: Yes (Other)
  Sender: FDA-Public Use
  Company Number: PHHY2014BR010379

PATIENT
  Sex: Male
  Weight: 83 kg

DRUGS (4)
  1. SANDOSTATIN LAR [Suspect]
     Indication: ACROMEGALY
     Dosage: 20 MG, EVERY 28 DAYS
     Route: 030
     Dates: start: 2008
  2. SANDOSTATIN LAR [Suspect]
     Dosage: 30 MG, EVERY 28 DAYS
     Route: 030
     Dates: start: 2011, end: 2012
  3. SOMATOLINE [Suspect]
     Indication: ACROMEGALY
     Dosage: 120 MG, EVERY 28 DAYS
     Dates: start: 201301
  4. SOMATOLINE [Suspect]
     Dosage: 1 DF, EVERY 28 DAYS
     Route: 030

REACTIONS (6)
  - Urethral stenosis [Recovered/Resolved]
  - Application site erythema [Not Recovered/Not Resolved]
  - Blood pressure fluctuation [Unknown]
  - Application site pain [Not Recovered/Not Resolved]
  - Headache [Recovered/Resolved]
  - Drug ineffective [Unknown]
